FAERS Safety Report 6122240-6 (Version None)
Quarter: 2009Q1

REPORT INFORMATION
  Report Type: 
  Country: None (occurrence: None)
  Receive Date: 20090316
  Receipt Date: 20090226
  Transmission Date: 20090719
  Serious: Yes (Hospitalization, Other)
  Sender: FDA-Public Use
  Company Number: 038584

PATIENT
  Age: 71 Year
  Sex: Male

DRUGS (9)
  1. BISOPROLOL FUMARATE [Suspect]
     Indication: HYPERTENSION
     Dosage: 5 MG (5 MG,1 IN - 2) ORAL
     Route: 048
     Dates: end: 20090309
  2. MOXIFLOXACIN HYDROCHLORIDE [Suspect]
     Indication: PNEUMONIA
     Dosage: 400 MG (400 MG, 1 IN 1 D),ORAL ; ORAL ; ORAL ; ORAL ; ORAL ; ORAL ; ORAL
     Route: 048
     Dates: start: 20090304, end: 20090309
  3. CLARITHROMYCIN [Suspect]
     Dosage: 500 MG (500 MG,1 IN 1 D) ORAL
     Route: 048
     Dates: start: 20080225, end: 20080304
  4. PERINDOPRIL ERBUMINE [Concomitant]
  5. ATORVASTATIN CALCIUM [Concomitant]
  6. ALLOPURINOL [Concomitant]
  7. FLUTICASONE PROPIONATE W/SALMETEROL [Concomitant]
  8. AMLODIPINE [Concomitant]
  9. WARFARIN SODIUM CLATHRATE [Concomitant]

REACTIONS (4)
  - BRADYCARDIA [None]
  - BUNDLE BRANCH BLOCK RIGHT [None]
  - ELECTROCARDIOGRAM QT INTERVAL ABNORMAL [None]
  - PNEUMONIA [None]
